FAERS Safety Report 10046907 (Version 1)
Quarter: 2014Q1

REPORT INFORMATION
  Report Type: Spontaneous
  Country: JP (occurrence: None)
  Receive Date: 20140327
  Receipt Date: 20140327
  Transmission Date: 20141002
  Serious: Yes (Other)
  Sender: FDA-Public Use
  Company Number: JP-015091

PATIENT
  Sex: 0

DRUGS (1)
  1. DESMOPRESSIN (DESMOPRESSIN) [Suspect]
     Indication: DIABETES INSIPIDUS
     Dosage: (TRANNSPLACENTAL) (TO NOT CONTINUING THERAPY DATES)
     Route: 064

REACTIONS (2)
  - Foetal heart rate deceleration abnormality [None]
  - Maternal drugs affecting foetus [None]
